FAERS Safety Report 16760095 (Version 2)
Quarter: 2019Q3

REPORT INFORMATION
  Report Type: Spontaneous
  Country: US (occurrence: US)
  Receive Date: 20190830
  Receipt Date: 20190930
  Transmission Date: 20191005
  Serious: Yes (Other)
  Sender: FDA-Public Use
  Company Number: US-PFIZER INC-2019371875

PATIENT
  Age: 58 Year
  Sex: Male

DRUGS (1)
  1. DILANTIN [Suspect]
     Active Substance: PHENYTOIN
     Dosage: 400 MG, DAILY (4 CAPSULES DAILY AT BEDTIME 90 DAYS)
     Route: 048

REACTIONS (3)
  - Seizure [Unknown]
  - Dysgraphia [Unknown]
  - Reading disorder [Unknown]
